FAERS Safety Report 10839963 (Version 1)
Quarter: 2015Q1

REPORT INFORMATION
  Report Type: Spontaneous
  Country: US (occurrence: US)
  Receive Date: 20150220
  Receipt Date: 20150220
  Transmission Date: 20150721
  Serious: No
  Sender: FDA-Public Use
  Company Number: US-ABBVIE-14P-163-1247524-00

PATIENT
  Age: 38 Year
  Sex: Female

DRUGS (1)
  1. HUMIRA [Suspect]
     Active Substance: ADALIMUMAB
     Indication: PSORIASIS

REACTIONS (15)
  - Injection site pain [Unknown]
  - Pain in extremity [Unknown]
  - Cough [Unknown]
  - Otitis externa [Unknown]
  - Ear infection [Unknown]
  - Perennial allergy [Unknown]
  - Drug hypersensitivity [Unknown]
  - Rhinorrhoea [Unknown]
  - Skin exfoliation [Unknown]
  - Psoriasis [Unknown]
  - Drug effect incomplete [Unknown]
  - Pain [Unknown]
  - Musculoskeletal stiffness [Unknown]
  - Joint stiffness [Unknown]
  - Arthralgia [Unknown]
